FAERS Safety Report 6685579-1 (Version None)
Quarter: 2010Q2

REPORT INFORMATION
  Report Type: 
  Country: None (occurrence: None)
  Receive Date: 20100419
  Receipt Date: 20100409
  Transmission Date: 20101027
  Serious: No
  Sender: FDA-Public Use
  Company Number: US-BIOGENIDEC-2010BI012255

PATIENT
  Age: 53 Year
  Sex: Female

DRUGS (1)
  1. TYSABRI [Suspect]
     Indication: MULTIPLE SCLEROSIS
     Route: 042
     Dates: start: 20080118

REACTIONS (6)
  - DEHYDRATION [None]
  - DIARRHOEA [None]
  - INFLUENZA [None]
  - MEMORY IMPAIRMENT [None]
  - NASOPHARYNGITIS [None]
  - VOMITING [None]
